FAERS Safety Report 10009892 (Version 2)
Quarter: 2014Q1

REPORT INFORMATION
  Report Type: Spontaneous
  Country: US (occurrence: US)
  Receive Date: 20140312
  Receipt Date: 20140312
  Transmission Date: 20141002
  Serious: No
  Sender: FDA-Public Use
  Company Number: US-INCYTE CORPORATION-2012IN002563

PATIENT
  Age: 64 Year
  Sex: Female

DRUGS (5)
  1. JAKAFI [Suspect]
     Indication: MYELOFIBROSIS
     Dosage: 20 MG, BID
     Route: 048
     Dates: start: 201210
  2. AMBIEN [Concomitant]
  3. NEXIUM [Concomitant]
  4. VESICARE [Concomitant]
  5. FUROSEMIDE [Concomitant]

REACTIONS (8)
  - Headache [Unknown]
  - Hair texture abnormal [Unknown]
  - Alopecia [Unknown]
  - Onychoclasis [Unknown]
  - Insomnia [Unknown]
  - Thrombocytosis [Unknown]
  - Iron deficiency [Unknown]
  - Weight increased [Unknown]
